FAERS Safety Report 12476153 (Version 1)
Quarter: 2016Q2

REPORT INFORMATION
  Report Type: Spontaneous
  Country: IT (occurrence: IT)
  Receive Date: 20160617
  Receipt Date: 20160617
  Transmission Date: 20160815
  Serious: Yes (Hospitalization, Other)
  Sender: FDA-Public Use
  Company Number: IT-OTSUKA-2016_013895

PATIENT
  Age: 8 Month
  Sex: Male
  Weight: 8 kg

DRUGS (2)
  1. BUSULFAN. [Suspect]
     Active Substance: BUSULFAN
     Indication: BONE MARROW TRANSPLANT
     Dosage: 29.4 MG, QD (1/DAY)
     Route: 042
     Dates: start: 20160222, end: 20160223
  2. BUSULFAN. [Suspect]
     Active Substance: BUSULFAN
     Dosage: 44.3 MG, QD (1/DAY)
     Route: 042
     Dates: start: 20160224, end: 20160225

REACTIONS (6)
  - Neutrophil count decreased [Recovering/Resolving]
  - White blood cell count decreased [Recovering/Resolving]
  - Melaena [Recovering/Resolving]
  - Anaemia [Recovering/Resolving]
  - Thrombocytopenia [Recovering/Resolving]
  - Off label use [Unknown]

NARRATIVE: CASE EVENT DATE: 20160311
